FAERS Safety Report 5182104-1 (Version None)
Quarter: 2006Q4

REPORT INFORMATION
  Report Type: 
  Country: None (occurrence: None)
  Receive Date: 20061220
  Receipt Date: 20060515
  Transmission Date: 20070319
  Serious: No
  Sender: FDA-Public Use
  Company Number: US-GLAXOSMITHKLINE-A0605579A

PATIENT
  Age: 54 Year
  Sex: Female

DRUGS (1)
  1. COMMIT [Suspect]
     Dates: start: 20060513, end: 20060513

REACTIONS (5)
  - MALAISE [None]
  - NAUSEA [None]
  - NICOTINE DEPENDENCE [None]
  - ORAL DISCOMFORT [None]
  - VOMITING [None]
